FAERS Safety Report 8372027-9 (Version None)
Quarter: 2012Q2

REPORT INFORMATION
  Report Type: 
  Country: None (occurrence: None)
  Receive Date: 20120518
  Receipt Date: 20120508
  Transmission Date: 20120825
  Serious: Yes (Other)
  Sender: FDA-Public Use
  Company Number: US-RB-039008-12

PATIENT
  Age: 45 Year
  Sex: Female

DRUGS (3)
  1. GEODON [Concomitant]
     Indication: SCHIZOPHRENIA
     Dosage: UNKNOWN DOSAGE DETAILS
     Route: 065
  2. XANAX [Concomitant]
     Indication: ANXIETY DISORDER
     Dosage: UNKNOWN DOSAGE DETAILS
     Route: 065
  3. SUBOXONE [Suspect]
     Indication: DRUG DEPENDENCE
     Dosage: 8 MG ONCE AND 4 MG 10 MINUTES LATER
     Route: 060
     Dates: start: 20120327, end: 20120327

REACTIONS (9)
  - NAUSEA [None]
  - HALLUCINATION [None]
  - DEHYDRATION [None]
  - WRONG TECHNIQUE IN DRUG USAGE PROCESS [None]
  - VOMITING [None]
  - HOT FLUSH [None]
  - BLOOD PRESSURE INCREASED [None]
  - OFF LABEL USE [None]
  - AMNESIA [None]
